FAERS Safety Report 6503756-7 (Version None)
Quarter: 2009Q4

REPORT INFORMATION
  Report Type: 
  Country: None (occurrence: None)
  Receive Date: 20091216
  Receipt Date: 20091216
  Transmission Date: 20100525
  Serious: Yes (Other)
  Sender: FDA-Public Use
  Company Number: None

PATIENT
  Sex: Female
  Weight: 67.1324 kg

DRUGS (2)
  1. CIPROFLOXACIN [Suspect]
     Indication: DIVERTICULITIS
     Dosage: 1 TABLET TWICE DAILY FOR 10 DAYS
     Dates: start: 20090810, end: 20090811
  2. CIPROFLOXACIN [Suspect]
     Indication: URINARY TRACT INFECTION
     Dosage: 1 TABLET TWICE DAILY FOR 10 DAYS
     Dates: start: 20090810, end: 20090811

REACTIONS (4)
  - HEMIPARESIS [None]
  - PAIN IN EXTREMITY [None]
  - SLEEP DISORDER [None]
  - TENDON DISORDER [None]
